FAERS Safety Report 15497809 (Version 1)
Quarter: 2018Q4

REPORT INFORMATION
  Report Type: Spontaneous
  Country: US (occurrence: US)
  Receive Date: 20181014
  Receipt Date: 20181014
  Transmission Date: 20190205
  Serious: Yes (Disabling, Other)
  Sender: FDA-Public Use
  Company Number: None

PATIENT
  Age: 63 Year
  Sex: Female
  Weight: 94.5 kg

DRUGS (14)
  1. LAMOTRIGINE. [Concomitant]
     Active Substance: LAMOTRIGINE
  2. PRAZOSIN. [Concomitant]
     Active Substance: PRAZOSIN
  3. CYMBALTA [Concomitant]
     Active Substance: DULOXETINE HYDROCHLORIDE
  4. CPAP [Concomitant]
     Active Substance: DEVICE
  5. CLONAZEPAM. [Concomitant]
     Active Substance: CLONAZEPAM
  6. VITAMIN D [Concomitant]
     Active Substance: CHOLECALCIFEROL
  7. GABAPENTIN. [Concomitant]
     Active Substance: GABAPENTIN
  8. LEVOXYL [Concomitant]
     Active Substance: LEVOTHYROXINE SODIUM
  9. RESCUE INHALER [Concomitant]
  10. HYDROXYZINE [Concomitant]
     Active Substance: HYDROXYZINE HYDROCHLORIDE
  11. MULTIPLE VITAMIN [Concomitant]
     Active Substance: VITAMINS
  12. FIBER SUPPLEMENT [Concomitant]
     Active Substance: DIETARY SUPPLEMENT
  13. DULOXETINE 60 MG, DULOXETINE 30MG, DULOXETINE 20MG [Suspect]
     Active Substance: DULOXETINE
     Indication: PRODUCT USED FOR UNKNOWN INDICATION
     Dosage: ?          QUANTITY:2 CAPSULE(S);?
     Route: 048
  14. VYVANSE [Concomitant]
     Active Substance: LISDEXAMFETAMINE DIMESYLATE

REACTIONS (15)
  - Confusional state [None]
  - Tinnitus [None]
  - Irritability [None]
  - Nightmare [None]
  - Influenza like illness [None]
  - Dizziness [None]
  - Abdominal discomfort [None]
  - Paraesthesia [None]
  - Withdrawal syndrome [None]
  - Hypoaesthesia [None]
  - Chills [None]
  - Therapy change [None]
  - Hyperhidrosis [None]
  - Lethargy [None]
  - Myalgia [None]

NARRATIVE: CASE EVENT DATE: 20180915
